FAERS Safety Report 4678110-3 (Version None)
Quarter: 2005Q2

REPORT INFORMATION
  Report Type: 
  Country: None (occurrence: None)
  Receive Date: 20050527
  Receipt Date: 20050520
  Transmission Date: 20051028
  Serious: No
  Sender: FDA-Public Use
  Company Number: TPA2003A00254

PATIENT
  Age: 69 Year
  Sex: Male
  Weight: 79.8331 kg

DRUGS (13)
  1. PIOGLITAZONE HCL [Suspect]
     Indication: DIABETES MELLITUS NON-INSULIN-DEPENDENT
     Dosage: PER ORAL
     Route: 048
  2. NIFEDIPINE [Concomitant]
  3. LISINOPRIL [Concomitant]
  4. LASIX [Concomitant]
  5. ATENOLOL [Concomitant]
  6. LOVASTATIN [Concomitant]
  7. EPOGEN [Concomitant]
  8. REGULAR INSULIN [Concomitant]
  9. NPH INSULIN [Concomitant]
  10. ACETYLSALICYLIC ACID SRT [Concomitant]
  11. WELLBUTRIN SR [Concomitant]
  12. CLOTRIMAZOLE (CLOTRIMAZOLE) [Concomitant]
  13. NEOMYCIN/POLYMYXIN (NEOSPORIN POWDER) [Concomitant]

REACTIONS (4)
  - BLOOD GLUCOSE INCREASED [None]
  - CONDITION AGGRAVATED [None]
  - HEADACHE [None]
  - HYPERTENSION [None]
